FAERS Safety Report 9445060 (Version 2)
Quarter: 2013Q3

REPORT INFORMATION
  Report Type: Report from Study
  Country: DE (occurrence: DE)
  Receive Date: 20130807
  Receipt Date: 20130903
  Transmission Date: 20140515
  Serious: Yes (Hospitalization)
  Sender: FDA-Public Use
  Company Number: DE-PFIZER INC-2013177761

PATIENT
  Age: 47 Year
  Sex: Female
  Weight: 56 kg

DRUGS (3)
  1. TEMSIROLIMUS [Suspect]
     Dosage: 50 MG, UNK
     Dates: start: 20130529, end: 20130703
  2. RITUXIMAB [Suspect]
     Dosage: 618.75 MG, UNK
     Dates: start: 20130528, end: 20130703
  3. BENDAMUSTINE [Suspect]
     Dosage: 148.50 MG, UNK
     Dates: start: 20130528, end: 20130703

REACTIONS (1)
  - Atypical pneumonia [Unknown]
